FAERS Safety Report 5983827-4 (Version None)
Quarter: 2008Q4

REPORT INFORMATION
  Report Type: 
  Country: None (occurrence: None)
  Receive Date: 20081205
  Receipt Date: 20081205
  Transmission Date: 20090506
  Serious: Yes (Hospitalization)
  Sender: FDA-Public Use
  Company Number: None

PATIENT
  Sex: Female
  Weight: 95.45 kg

DRUGS (2)
  1. CARBOPLATIN [Suspect]
     Dosage: 443 MG
  2. TAXOL [Suspect]
     Dosage: 347 MG

REACTIONS (2)
  - CHILLS [None]
  - FEBRILE NEUTROPENIA [None]
